FAERS Safety Report 7491121-8 (Version None)
Quarter: 2011Q2

REPORT INFORMATION
  Report Type: 
  Country: None (occurrence: None)
  Receive Date: 20110519
  Receipt Date: 20110513
  Transmission Date: 20111010
  Serious: Yes (Life-Threatening, Hospitalization)
  Sender: FDA-Public Use
  Company Number: FR-ROCHE-777242

PATIENT
  Sex: Male
  Weight: 86 kg

DRUGS (8)
  1. FORLAX [Concomitant]
  2. ELOXATIN [Suspect]
     Indication: COLORECTAL CANCER
     Dosage: LAST DOSE PRIOR TO SAE 06 APRIL 2011
     Route: 042
     Dates: start: 20110406
  3. FLUOROURACIL [Suspect]
     Indication: COLORECTAL CANCER
     Dosage: LAST DOSE PRIOR TO SAE 07 APRIL 2011
     Route: 042
     Dates: start: 20110406
  4. COZAAR [Concomitant]
  5. LEUCOVORIN CALCIUM [Suspect]
     Indication: COLORECTAL CANCER
     Dosage: LAST DOSE PRIOR TO SAE 06 APRIL 2011, DRUG REPORTED AS FOLINATE CALCIUM
     Route: 042
     Dates: start: 20110406
  6. OXYCODONE HCL [Concomitant]
     Dates: start: 20110401
  7. ESCITALOPRAM [Concomitant]
  8. BEVACIZUMAB [Suspect]
     Indication: COLORECTAL CANCER
     Dosage: LAST DOSE PRIOR TO SAE 06 APRIL 2011
     Route: 042
     Dates: start: 20110406, end: 20110413

REACTIONS (3)
  - ARRHYTHMIA [None]
  - CARDIAC FAILURE [None]
  - PULMONARY EMBOLISM [None]
